FAERS Safety Report 6374489-5 (Version None)
Quarter: 2009Q3

REPORT INFORMATION
  Report Type: 
  Country: None (occurrence: None)
  Receive Date: 20090921
  Receipt Date: 20090910
  Transmission Date: 20100115
  Serious: Yes (Death, Hospitalization)
  Sender: FDA-Public Use
  Company Number: 2009AL004039

PATIENT
  Age: 63 Year
  Sex: Male
  Weight: 81.6475 kg

DRUGS (26)
  1. DIGOXIN [Suspect]
     Dosage: 0.25MG, DAILY, PO
     Route: 048
     Dates: start: 20070821, end: 20071012
  2. DIGOXIN [Suspect]
     Dosage: 0.125 MG, DAILY PO
     Route: 048
     Dates: start: 20070527, end: 20070820
  3. DIGOXIN [Suspect]
     Dosage: 0.125 MG, DAILY PO
     Route: 048
     Dates: start: 20071013
  4. HUMULIN R [Concomitant]
  5. LIPITOR [Concomitant]
  6. KLONOPIN [Concomitant]
  7. RISPERDAL [Concomitant]
  8. PAXIL [Concomitant]
  9. ASPIRIN [Concomitant]
  10. LISINOPRIL [Concomitant]
  11. PREDNISONE [Concomitant]
  12. NORVASC [Concomitant]
  13. BACTRIM [Concomitant]
  14. DARVOCET [Concomitant]
  15. BUMEX [Concomitant]
  16. COUMADIN [Concomitant]
  17. PROCRIT [Concomitant]
  18. POTASSIUM CHLORIDE [Concomitant]
  19. CALCIUM [Concomitant]
  20. ALBUTEROL [Concomitant]
  21. ALLOPURINOL [Concomitant]
  22. AMIODARONE [Concomitant]
  23. GENGRAF [Concomitant]
  24. CELLCEPT [Concomitant]
  25. COREG [Concomitant]
  26. REPLIVA [Concomitant]

REACTIONS (16)
  - ARTHRALGIA [None]
  - ASTHENIA [None]
  - CARDIAC FAILURE CONGESTIVE [None]
  - CELLULITIS [None]
  - DYSPNOEA [None]
  - FLANK PAIN [None]
  - GOUTY ARTHRITIS [None]
  - HYPOKALAEMIA [None]
  - JOINT EFFUSION [None]
  - NAUSEA [None]
  - OEDEMA PERIPHERAL [None]
  - PANCYTOPENIA [None]
  - PNEUMONIA [None]
  - PRURITUS [None]
  - RENAL IMPAIRMENT [None]
  - VASCULAR GRAFT [None]
